FAERS Safety Report 14761607 (Version 1)
Quarter: 2018Q2

REPORT INFORMATION
  Report Type: Report from Study
  Country: BR (occurrence: BR)
  Receive Date: 20180416
  Receipt Date: 20180416
  Transmission Date: 20180711
  Serious: Yes (Other)
  Sender: FDA-Public Use
  Company Number: BR-ROCHE-2103409

PATIENT
  Sex: Female

DRUGS (4)
  1. HERCEPTIN [Suspect]
     Active Substance: TRASTUZUMAB
     Indication: HER-2 POSITIVE BREAST CANCER
     Dosage: 69 CYCLES - LOADING HERCEPTIN DOSAGE 4 MG/KG AND DOSE FOR THE SUBSEQUENT TREATMENT 2 MG/KG
     Route: 065
     Dates: start: 20130915, end: 20150110
  2. PERJETA [Suspect]
     Active Substance: PERTUZUMAB
     Indication: HER-2 POSITIVE BREAST CANCER
     Dosage: 23 CYCLES - LOADING DOSE 840 MG AND THE DOSE FOR THE SUBSEQUENT TREATMENT 420 MG
     Route: 065
     Dates: start: 20130915, end: 20150110
  3. KADCYLA [Concomitant]
     Active Substance: ADO-TRASTUZUMAB EMTANSINE
     Indication: HER-2 POSITIVE BREAST CANCER
     Dosage: 23 CYCLES - 3.6 MG/KG
     Route: 065
     Dates: start: 20150111, end: 20160430
  4. TAXOL [Suspect]
     Active Substance: PACLITAXEL
     Indication: HER-2 POSITIVE BREAST CANCER
     Route: 065
     Dates: start: 20130915, end: 20150110

REACTIONS (1)
  - HER-2 positive breast cancer [Unknown]
